FAERS Safety Report 9727839 (Version 2)
Quarter: 2014Q2

REPORT INFORMATION
  Report Type: Spontaneous
  Country: US (occurrence: US)
  Receive Date: 20131204
  Receipt Date: 20140423
  Transmission Date: 20141212
  Serious: Yes (Death, Hospitalization)
  Sender: FDA-Public Use
  Company Number: US-ROCHE-1307531

PATIENT
  Age: 41 Year
  Sex: Female

DRUGS (6)
  1. MYCOPHENOLATE MOFETIL [Suspect]
     Indication: SYSTEMIC LUPUS ERYTHEMATOSUS
     Route: 065
  2. BENLYSTA [Suspect]
     Indication: SYSTEMIC LUPUS ERYTHEMATOSUS
     Route: 042
     Dates: start: 201208, end: 20130406
  3. METHOTREXATE [Concomitant]
  4. CYCLOPHOSPHAMIDE [Concomitant]
  5. ACTHAR [Concomitant]
  6. PREDNISONE [Concomitant]
     Route: 048

REACTIONS (14)
  - Progressive multifocal leukoencephalopathy [Fatal]
  - JC virus infection [Not Recovered/Not Resolved]
  - Viral infection [Not Recovered/Not Resolved]
  - Drooling [Not Recovered/Not Resolved]
  - Speech disorder [Not Recovered/Not Resolved]
  - Aphasia [Not Recovered/Not Resolved]
  - Dysphagia [Not Recovered/Not Resolved]
  - Swelling face [Not Recovered/Not Resolved]
  - Sensation of foreign body [Recovered/Resolved]
  - Cerebrovascular accident [Not Recovered/Not Resolved]
  - Abasia [Not Recovered/Not Resolved]
  - Lupus encephalitis [Not Recovered/Not Resolved]
  - VIIth nerve paralysis [Not Recovered/Not Resolved]
  - Asthenia [Unknown]
